FAERS Safety Report 6532485-9 (Version None)
Quarter: 2010Q1

REPORT INFORMATION
  Report Type: 
  Country: None (occurrence: None)
  Receive Date: 20100111
  Receipt Date: 20100104
  Transmission Date: 20100710
  Serious: Yes (Hospitalization)
  Sender: FDA-Public Use
  Company Number: US-BIOGENIDEC-2009BI026594

PATIENT
  Age: 76 Year
  Sex: Female

DRUGS (3)
  1. AVONEX [Suspect]
     Indication: MULTIPLE SCLEROSIS
     Route: 030
     Dates: start: 20020718
  2. AVONEX [Suspect]
     Route: 030
     Dates: start: 20041018
  3. AZILECT [Concomitant]

REACTIONS (4)
  - ABASIA [None]
  - ADVERSE DRUG REACTION [None]
  - FALL [None]
  - HIP FRACTURE [None]
